FAERS Safety Report 15837298 (Version 1)
Quarter: 2018Q4

REPORT INFORMATION
  Report Type: Spontaneous
  Country: US (occurrence: US)
  Receive Date: 20181221
  Receipt Date: 20181221
  Transmission Date: 20190205
  Serious: Yes (Hospitalization)
  Sender: FDA-Public Use
  Company Number: None

PATIENT
  Age: 40 Year
  Sex: Female
  Weight: 70 kg

DRUGS (5)
  1. CARBOPLATIN AUC 2 [Suspect]
     Active Substance: CARBOPLATIN
     Indication: BREAST CANCER
     Dosage: ?          OTHER FREQUENCY:WEEK 1 + 2;?
     Route: 042
     Dates: start: 20131011, end: 20181206
  2. PACLITAXEL 80 MG/KG [Suspect]
     Active Substance: PACLITAXEL
     Indication: BREAST CANCER
     Route: 042
     Dates: start: 20181011, end: 20181213
  3. PERTUZUMAB 420 MG [Suspect]
     Active Substance: PERTUZUMAB
     Indication: BREAST CANCER
     Route: 042
     Dates: start: 20181011, end: 20181123
  4. TRASTUZUMAB 8MG/KG C1D2; 6MG/KG C2-6 [Suspect]
     Active Substance: TRASTUZUMAB
     Indication: BREAST CANCER
     Dosage: OTHER STRENGTH:8MG/KG C1D2; 6MG/K;OTHER DOSE:552MG C1;?
     Route: 042
     Dates: start: 20181011, end: 20181123
  5. TRASTUZUMAB 8MG/KG C1D2; 6MG/KG C2-6 [Suspect]
     Active Substance: TRASTUZUMAB
     Indication: BREAST CANCER
     Dosage: OTHER STRENGTH:8MG/KG C1D2; 6MG/K;OTHER DOSE:414MG C2-6;?
     Route: 042
     Dates: start: 20181011, end: 20181123

REACTIONS (9)
  - Anaemia [None]
  - Hypocalcaemia [None]
  - Hypoalbuminaemia [None]
  - Abdominal pain [None]
  - Abdominal distension [None]
  - White blood cell count decreased [None]
  - Hypomagnesaemia [None]
  - Diarrhoea [None]
  - Dehydration [None]

NARRATIVE: CASE EVENT DATE: 20181217
